FAERS Safety Report 16189564 (Version 1)
Quarter: 2019Q2

REPORT INFORMATION
  Report Type: Spontaneous
  Country: US (occurrence: US)
  Receive Date: 20190411
  Receipt Date: 20190411
  Transmission Date: 20190711
  Serious: No
  Sender: FDA-Public Use
  Company Number: None

PATIENT
  Age: 68 Year
  Sex: Female
  Weight: 55.8 kg

DRUGS (1)
  1. PROLIA [Suspect]
     Active Substance: DENOSUMAB
     Indication: OSTEOPOROSIS

REACTIONS (5)
  - Pain in extremity [None]
  - Stem cell transplant [None]
  - Eczema [None]
  - Stress fracture [None]
  - Arthralgia [None]

NARRATIVE: CASE EVENT DATE: 20160501
